FAERS Safety Report 6219047-8 (Version None)
Quarter: 2009Q2

REPORT INFORMATION
  Report Type: 
  Country: None (occurrence: None)
  Receive Date: 20090608
  Receipt Date: 20090529
  Transmission Date: 20091009
  Serious: Yes (Disabling)
  Sender: FDA-Public Use
  Company Number: RO-MERCK-0906USA00511

PATIENT
  Age: 14 Year
  Sex: Female

DRUGS (3)
  1. DECADRON [Suspect]
     Indication: ACUTE LYMPHOCYTIC LEUKAEMIA
     Route: 048
  2. ZOLEDRONIC ACID [Concomitant]
     Indication: ACUTE LYMPHOCYTIC LEUKAEMIA
     Route: 042
  3. ANTINEOPLASTIC (UNSPECIFIED) [Concomitant]
     Indication: ACUTE LYMPHOCYTIC LEUKAEMIA
     Route: 065

REACTIONS (2)
  - DELAYED PUBERTY [None]
  - OSTEOPOROSIS [None]
